FAERS Safety Report 22360046 (Version 1)
Quarter: 2023Q2

REPORT INFORMATION
  Report Type: Spontaneous
  Country: US (occurrence: US)
  Receive Date: 20230524
  Receipt Date: 20230524
  Transmission Date: 20230722
  Serious: No
  Sender: FDA-Public Use
  Company Number: US-UCBSA-2021048027

PATIENT
  Sex: Female
  Weight: 80 kg

DRUGS (7)
  1. CIMZIA [Suspect]
     Active Substance: CERTOLIZUMAB PEGOL
     Indication: Rheumatoid arthritis
     Dosage: 200 MILLIGRAM, EV 2 WEEKS(QOW)
     Route: 058
  2. PFIZER-BIONTECH COVID-19 VACCINE [Concomitant]
     Active Substance: TOZINAMERAN
     Indication: Product used for unknown indication
  3. FLUCELVAX QUADRIVALENT 2017/2018 (INFLUENZA A VIRUS A/DARWIN/11/2021 ( [Concomitant]
     Active Substance: INFLUENZA A VIRUS A/DARWIN/11/2021 (H3N2) ANTIGEN (MDCK CELL DERIVED, PROPIOLACTONE INACTIVATED)\INF
     Indication: Product used for unknown indication
     Dosage: UNK
     Dates: start: 2021
  4. MINERALS\VITAMINS [Concomitant]
     Active Substance: MINERALS\VITAMINS
     Indication: Product used for unknown indication
     Dosage: 19 29-1-25MG
  5. FIBER [Concomitant]
     Indication: Product used for unknown indication
     Dosage: 625 MILLIGRAM
  6. CALCIUM [Concomitant]
     Active Substance: CALCIUM
     Indication: Product used for unknown indication
     Dosage: 500 (1250)TAB CHEW
  7. HYDROXYCHLOROQUINE SULFATE [Concomitant]
     Active Substance: HYDROXYCHLOROQUINE SULFATE
     Indication: Product used for unknown indication

REACTIONS (2)
  - Maternal exposure during pregnancy [Unknown]
  - COVID-19 immunisation [Unknown]
